FAERS Safety Report 9588326 (Version 1)
Quarter: 2013Q4

REPORT INFORMATION
  Report Type: Spontaneous
  Country: US (occurrence: US)
  Receive Date: 20131003
  Receipt Date: 20131003
  Transmission Date: 20140711
  Serious: No
  Sender: FDA-Public Use
  Company Number: US-AMGEN-USASP2012063735

PATIENT
  Sex: Male
  Weight: 99.77 kg

DRUGS (4)
  1. ENBREL [Suspect]
     Indication: PSORIATIC ARTHROPATHY
     Dosage: 50 MG, 2 TIMES/WK
     Route: 058
  2. HYDROCHLOROTHIAZIDE [Concomitant]
     Dosage: 12.5 MG, UNK
  3. ADVIL PM                           /05810501/ [Concomitant]
     Dosage: 200-25 MG, UNK
  4. ZYRTEC [Concomitant]
     Dosage: 10 MG, UNK

REACTIONS (2)
  - Condition aggravated [Unknown]
  - Nasopharyngitis [Unknown]
